FAERS Safety Report 6141177-X (Version None)
Quarter: 2009Q2

REPORT INFORMATION
  Report Type: 
  Country: None (occurrence: None)
  Receive Date: 20090402
  Receipt Date: 20090326
  Transmission Date: 20091009
  Serious: Yes (Other)
  Sender: FDA-Public Use
  Company Number: AR-ABBOTT-09P-007-0565414-00

PATIENT
  Age: 25 Year

DRUGS (4)
  1. VALCOTE TABLETS [Suspect]
     Indication: DRUG USE FOR UNKNOWN INDICATION
     Route: 048
  2. VALCOTE TABLETS [Suspect]
  3. VALCOTE TABLETS [Suspect]
  4. LEVITARACETAM [Concomitant]
     Indication: CONVULSION
     Dates: start: 20081201

REACTIONS (2)
  - ANTICONVULSANT DRUG LEVEL DECREASED [None]
  - CONVULSION [None]
